FAERS Safety Report 8585420-6 (Version None)
Quarter: 2012Q3

REPORT INFORMATION
  Report Type: 
  Country: None (occurrence: None)
  Receive Date: 20120810
  Receipt Date: 20120806
  Transmission Date: 20120928
  Serious: No
  Sender: FDA-Public Use
  Company Number: US-PFIZER INC-2012192098

PATIENT
  Age: 18 Year
  Sex: Female
  Weight: 58.05 kg

DRUGS (1)
  1. DEPO-PROVERA [Suspect]
     Indication: CONTRACEPTION
     Dosage: UNK, EVERY 3 MONTHS
     Dates: start: 20120514, end: 20120806

REACTIONS (3)
  - MENORRHAGIA [None]
  - FATIGUE [None]
  - PALLOR [None]
